FAERS Safety Report 9552069 (Version 1)
Quarter: 2013Q3

REPORT INFORMATION
  Report Type: Spontaneous
  Country: US (occurrence: None)
  Receive Date: 20130724
  Receipt Date: 20130724
  Transmission Date: 20140515
  Serious: Yes (Hospitalization)
  Sender: FDA-Public Use
  Company Number: PHEH2013US000476

PATIENT
  Age: 69 Year
  Sex: Female

DRUGS (10)
  1. GLEEVEC [Suspect]
     Indication: GASTROINTESTINAL STROMAL TUMOUR
     Dosage: (100MG)
     Route: 048
  2. LEXAPRO (ESCITALOPRAM OXALATE) [Concomitant]
  3. LISINOPRIL (LISINOPRIL) [Concomitant]
  4. METOPROLOL [Concomitant]
  5. ASPIRIN (ACETYLSALICYLIC ACID) [Concomitant]
  6. TOPROL XL (METOPROLOL SUCCINATE) [Concomitant]
  7. NORTRIPTYLIN (NORTRIPTYLINE HYDROCHLORIDE) [Concomitant]
  8. MULTICAPS (ASCORBIC ACID, BIOTIN, CALCIUM, CHOLINE, CHROMIUM, COLECALCIFEROL, CYANOCOBALAMIN, FOLIC ACID, INOSITOL, IODINE, MAGNESIUM, MANGANESE, NICOTINIC ACID, PANTOTHENIC ACID, POTASSIUM, PYRIDOXINE HYDROCHLORIDE, RETINOL, RIBOFLAVIN, SELENIUM, THIAMINE HYDROCHLORIDE, TOCOPHEROL, ZINC) [Concomitant]
  9. CALCIUM (CALCIUM) [Concomitant]
  10. VITAMIN C [Concomitant]

REACTIONS (5)
  - Myocardial infarction [None]
  - Staphylococcal infection [None]
  - Constipation [None]
  - Rash [None]
  - Pruritus [None]
